FAERS Safety Report 7000251 (Version 6)
Quarter: 2014Q3

REPORT INFORMATION
  Report Type: Spontaneous
  Country: GB (occurrence: GB)
  Receive Date: 20090522
  Receipt Date: 20140729
  Transmission Date: 20150326
  Serious: Yes (Hospitalization, Disabling)
  Sender: FDA-Public Use
  Company Number: GB-RANBAXY-2009RR-24187

PATIENT
  Age: 18 Year
  Sex: Female

DRUGS (3)
  1. FLAGYL [Suspect]
     Active Substance: METRONIDAZOLE\METRONIDAZOLE HYDROCHLORIDE
     Indication: PELVIC INFLAMMATORY DISEASE
     Dosage: 400 MG, TID
     Route: 065
  2. OFLOXACIN. [Suspect]
     Active Substance: OFLOXACIN
     Indication: PELVIC INFLAMMATORY DISEASE
     Dosage: 400 MG, BID
     Route: 065
  3. CO-AMOXICLAV [Concomitant]
     Active Substance: AMOXICILLIN\CLAVULANIC ACID
     Indication: URINARY TRACT INFECTION
     Dosage: UNK
     Route: 065

REACTIONS (19)
  - Fear [Recovered/Resolved]
  - Substance-induced psychotic disorder [Recovered/Resolved]
  - Hyperreflexia [Recovered/Resolved]
  - White blood cell count decreased [Recovered/Resolved]
  - Muscular weakness [Unknown]
  - Drug interaction [Recovered/Resolved]
  - Immobile [Recovered/Resolved]
  - Pyrexia [Recovered/Resolved]
  - Anxiety [Recovered/Resolved]
  - Extensor plantar response [Recovered/Resolved]
  - Urine analysis abnormal [Recovered/Resolved]
  - Stupor [Unknown]
  - Paranoia [Recovered/Resolved]
  - Psychotic disorder due to a general medical condition [Recovered/Resolved]
  - Confusional state [Recovered/Resolved]
  - Negative thoughts [Recovered/Resolved]
  - Blood urine present [Recovered/Resolved]
  - Depressed mood [Recovered/Resolved]
  - Aphasia [Recovered/Resolved]
